FAERS Safety Report 9871052 (Version 1)
Quarter: 2014Q1

REPORT INFORMATION
  Report Type: Spontaneous
  Country: US (occurrence: US)
  Receive Date: 20140205
  Receipt Date: 20140205
  Transmission Date: 20141002
  Serious: Yes (Other)
  Sender: FDA-Public Use
  Company Number: US-JNJFOC-20140201980

PATIENT
  Age: 21 Year
  Sex: Male

DRUGS (2)
  1. INFLIXIMAB [Suspect]
     Indication: CROHN^S DISEASE
     Route: 042
  2. MERCAPTOPURINE [Suspect]
     Indication: CROHN^S DISEASE
     Route: 065

REACTIONS (9)
  - Proctitis [Unknown]
  - Multi-organ failure [Unknown]
  - Escherichia sepsis [Unknown]
  - Septic shock [Unknown]
  - Infection [Unknown]
  - Hepatosplenic T-cell lymphoma [Unknown]
  - Klebsiella infection [Unknown]
  - Epstein-Barr virus antigen positive [Unknown]
  - Histiocytosis haematophagic [Unknown]
